FAERS Safety Report 5402589-2 (Version None)
Quarter: 2007Q3

REPORT INFORMATION
  Report Type: 
  Country: None (occurrence: None)
  Receive Date: 20070801
  Receipt Date: 20070130
  Transmission Date: 20080115
  Serious: No
  Sender: FDA-Public Use
  Company Number: A0637621A

PATIENT
  Age: 43 Year
  Sex: Male

DRUGS (3)
  1. IMITREX [Suspect]
     Indication: CLUSTER HEADACHE
     Dosage: 100MG AS REQUIRED
     Route: 048
     Dates: start: 20050101
  2. LAMICTAL [Suspect]
     Dosage: 50MG TWICE PER DAY
     Route: 048
     Dates: start: 20060101
  3. TOPAMAX [Concomitant]

REACTIONS (3)
  - PRURITUS [None]
  - RASH [None]
  - URTICARIA [None]
